FAERS Safety Report 19498841 (Version 2)
Quarter: 2021Q3

REPORT INFORMATION
  Report Type: Spontaneous
  Country: FR (occurrence: FR)
  Receive Date: 20210706
  Receipt Date: 20210713
  Transmission Date: 20211014
  Serious: Yes (Death, Other)
  Sender: FDA-Public Use
  Company Number: FR-FERRINGPH-2021FE04286

PATIENT

DRUGS (1)
  1. PROPESS [Suspect]
     Active Substance: DINOPROSTONE
     Indication: PRODUCT USED FOR UNKNOWN INDICATION
     Dosage: UNK
     Route: 064
     Dates: start: 202010, end: 202010

REACTIONS (2)
  - Foetal heart rate disorder [Unknown]
  - Foetal death [Fatal]

NARRATIVE: CASE EVENT DATE: 202010
